FAERS Safety Report 7363582-6 (Version None)
Quarter: 2011Q1

REPORT INFORMATION
  Report Type: 
  Country: None (occurrence: None)
  Receive Date: 20110321
  Receipt Date: 20110316
  Transmission Date: 20110831
  Serious: Yes (Other)
  Sender: FDA-Public Use
  Company Number: US-PFIZER INC-2011058394

PATIENT
  Sex: Female
  Weight: 61 kg

DRUGS (1)
  1. ALPRAZOLAM [Suspect]
     Indication: SLEEP DISORDER
     Dosage: 5 MG, 1X/DAY
     Route: 048
     Dates: start: 19750101

REACTIONS (6)
  - NIGHTMARE [None]
  - LOW DENSITY LIPOPROTEIN INCREASED [None]
  - URINE ANALYSIS ABNORMAL [None]
  - HYPERTENSION [None]
  - BLOOD CHOLESTEROL INCREASED [None]
  - INCORRECT DOSE ADMINISTERED [None]
